FAERS Safety Report 9052071 (Version 2)
Quarter: 2013Q1

REPORT INFORMATION
  Report Type: Spontaneous
  Country: MY (occurrence: MY)
  Receive Date: 20130206
  Receipt Date: 20130304
  Transmission Date: 20140127
  Serious: Yes (Hospitalization, Other)
  Sender: FDA-Public Use
  Company Number: PHHY2013MY001529

PATIENT
  Age: 59 Year
  Sex: Female
  Weight: 60 kg

DRUGS (1)
  1. ACLASTA [Suspect]
     Indication: HIP FRACTURE
     Dosage: 5 MG, UNK
     Route: 042
     Dates: start: 20120822

REACTIONS (2)
  - Angioedema [Recovered/Resolved]
  - Laryngospasm [Unknown]
